FAERS Safety Report 10952677 (Version 1)
Quarter: 2015Q1

REPORT INFORMATION
  Report Type: Spontaneous
  Country: US (occurrence: None)
  Receive Date: 20150324
  Receipt Date: 20150324
  Transmission Date: 20150721
  Serious: No
  Sender: FDA-Public Use
  Company Number: None

PATIENT
  Age: 64 Year
  Sex: Male

DRUGS (2)
  1. CLINDAMYCIN [Suspect]
     Active Substance: CLINDAMYCIN\CLINDAMYCIN PHOSPHATE
     Indication: INFECTION
     Route: 048
     Dates: start: 20141222, end: 20141226
  2. TIMOLOL [Suspect]
     Active Substance: TIMOLOL
     Indication: GLAUCOMA
     Dates: start: 20141215, end: 20141226

REACTIONS (6)
  - Pharyngeal oedema [None]
  - Erythema [None]
  - Swelling face [None]
  - Tooth disorder [None]
  - Burning sensation [None]
  - Dyspnoea [None]

NARRATIVE: CASE EVENT DATE: 20141226
